FAERS Safety Report 19652209 (Version 2)
Quarter: 2021Q3

REPORT INFORMATION
  Report Type: Other
  Country: US (occurrence: US)
  Receive Date: 20210803
  Receipt Date: 20210924
  Transmission Date: 20211014
  Serious: Yes (Hospitalization, Other)
  Sender: FDA-Public Use
  Company Number: US-COVIS PHARMA GMBH-2021COV23488

PATIENT
  Age: 0 Year
  Sex: Male
  Weight: 1.82 kg

DRUGS (1)
  1. MAKENA [Suspect]
     Active Substance: HYDROXYPROGESTERONE CAPROATE
     Indication: FOETAL EXPOSURE DURING PREGNANCY
     Route: 064
     Dates: start: 20210315, end: 20210630

REACTIONS (4)
  - Necrotising enterocolitis neonatal [Unknown]
  - Premature baby [Unknown]
  - Haematochezia [Unknown]
  - Neonatal respiratory distress [Unknown]

NARRATIVE: CASE EVENT DATE: 202107
